FAERS Safety Report 21335030 (Version 1)
Quarter: 2022Q3

REPORT INFORMATION
  Report Type: Spontaneous
  Country: US (occurrence: None)
  Receive Date: 20220914
  Receipt Date: 20220914
  Transmission Date: 20221027
  Serious: No
  Sender: FDA-Public Use
  Company Number: None

PATIENT
  Age: 79 Year
  Sex: Male
  Weight: 79.2 kg

DRUGS (22)
  1. LEUKERAN [Suspect]
     Active Substance: CHLORAMBUCIL
     Indication: B-cell small lymphocytic lymphoma
     Dosage: 14MG Q14D ORAL
     Route: 048
     Dates: start: 202208, end: 20220914
  2. ACETAMINOPHEN [Concomitant]
     Active Substance: ACETAMINOPHEN
  3. ALIGN [Concomitant]
     Active Substance: BIFIDOBACTERIUM LONGUM SUBSP. INFANTIS
  4. ALLOPURINOL [Concomitant]
     Active Substance: ALLOPURINOL
  5. BENADRYL [Concomitant]
     Active Substance: DIPHENHYDRAMINE HYDROCHLORIDE
  6. BENZONATATE [Concomitant]
     Active Substance: BENZONATATE
  7. DOCUSATE [Concomitant]
     Active Substance: DOCUSATE
  8. FINASTERIDE [Concomitant]
     Active Substance: FINASTERIDE
  9. FISH OIL OMEGA3 [Concomitant]
  10. HUMALOG [Concomitant]
     Active Substance: INSULIN LISPRO
  11. LEUKERAN [Concomitant]
     Active Substance: CHLORAMBUCIL
  12. LEVEMIR [Concomitant]
     Active Substance: INSULIN DETEMIR
  13. LEVOFLOXACIN [Concomitant]
     Active Substance: LEVOFLOXACIN
  14. LORAZEPAM [Concomitant]
     Active Substance: LORAZEPAM
  15. MIDODRINE [Concomitant]
     Active Substance: MIDODRINE
  16. MIRALAX [Concomitant]
     Active Substance: POLYETHYLENE GLYCOL 3350
  17. ONDANSETRON [Concomitant]
     Active Substance: ONDANSETRON
  18. POTASSIUM CHLORIDE [Concomitant]
     Active Substance: POTASSIUM CHLORIDE
  19. PREGABALIN [Concomitant]
     Active Substance: PREGABALIN
  20. VITAMINS [Concomitant]
     Active Substance: VITAMINS
  21. TORSEMIDE [Concomitant]
     Active Substance: TORSEMIDE
  22. TRAMADOL [Concomitant]
     Active Substance: TRAMADOL

REACTIONS (2)
  - Hospice care [None]
  - Therapy cessation [None]
